FAERS Safety Report 9513257 (Version 2)
Quarter: 2013Q4

REPORT INFORMATION
  Report Type: Spontaneous
  Country: US (occurrence: US)
  Receive Date: 20130910
  Receipt Date: 20131001
  Transmission Date: 20140711
  Serious: No
  Sender: FDA-Public Use
  Company Number: US-TEVA-431219USA

PATIENT
  Sex: Female

DRUGS (2)
  1. CLARAVIS [Suspect]
     Route: 048
     Dates: start: 20130621
  2. STEROID [Concomitant]

REACTIONS (3)
  - Depression [Unknown]
  - Mental disorder [Unknown]
  - Anger [Unknown]
